FAERS Safety Report 14861524 (Version 1)
Quarter: 2018Q2

REPORT INFORMATION
  Report Type: Spontaneous
  Country: US (occurrence: US)
  Receive Date: 20180423
  Receipt Date: 20180423
  Transmission Date: 20180711
  Serious: Yes (Other)
  Sender: FDA-Public Use
  Company Number: None

PATIENT
  Age: 70 Year
  Sex: Female
  Weight: 56.7 kg

DRUGS (9)
  1. METOPROLOL 50 MG ER [Concomitant]
     Dates: start: 20160306
  2. ACETAMINOPHEN 650 MG [Concomitant]
     Active Substance: ACETAMINOPHEN
     Dates: start: 20180328
  3. LISINOPRIL 10 MG [Concomitant]
     Active Substance: LISINOPRIL
     Dates: start: 20170305
  4. FLUOXETINE [Concomitant]
     Active Substance: FLUOXETINE HYDROCHLORIDE
     Dates: start: 20170305
  5. RITUXIMAB. [Suspect]
     Active Substance: RITUXIMAB
     Indication: WALDENSTROM^S MACROGLOBULINAEMIA
     Dosage: ?          OTHER FREQUENCY:Q28DAYS;?
     Route: 041
     Dates: start: 20180328
  6. CLONAZEPAM 0.5 MG [Concomitant]
     Active Substance: CLONAZEPAM
     Dates: start: 20160308
  7. RITUXIMAB. [Suspect]
     Active Substance: RITUXIMAB
     Indication: WALDENSTROM^S MACROGLOBULINAEMIA
     Dosage: ?          OTHER FREQUENCY:Q28 DAYS;?
     Route: 041
     Dates: start: 20180328
  8. BUPROPION 150 MG XL [Concomitant]
     Active Substance: BUPROPION HYDROCHLORIDE
     Dates: start: 20160314
  9. DIPHENHYDRAMINE 25 MG [Concomitant]
     Dates: start: 20180328

REACTIONS (3)
  - Infusion related reaction [None]
  - Pruritus [None]
  - Pharyngeal disorder [None]

NARRATIVE: CASE EVENT DATE: 20180328
